FAERS Safety Report 20409729 (Version 1)
Quarter: 2022Q1

REPORT INFORMATION
  Report Type: Spontaneous
  Country: TR (occurrence: TR)
  Receive Date: 20220201
  Receipt Date: 20220201
  Transmission Date: 20220423
  Serious: Yes (Hospitalization, Other)
  Sender: FDA-Public Use
  Company Number: TR-Accord-251828

PATIENT
  Age: 57 Year
  Sex: Male

DRUGS (1)
  1. CAPECITABINE [Suspect]
     Active Substance: CAPECITABINE
     Indication: Rectal cancer
     Dosage: TWICE DAILY FOR 14 DAYS FOLLOWED BY A 7 DAY REST PERIOD. CYCLES WERE REPEATED EVERY 21 DAYS
     Route: 048

REACTIONS (2)
  - Hepatitis B reactivation [Recovering/Resolving]
  - Hepatic function abnormal [Recovered/Resolved]
